FAERS Safety Report 7116838-6 (Version None)
Quarter: 2010Q4

REPORT INFORMATION
  Report Type: 
  Country: None (occurrence: None)
  Receive Date: 20101122
  Receipt Date: 20101109
  Transmission Date: 20110411
  Serious: Yes (Other)
  Sender: FDA-Public Use
  Company Number: CA-GENENTECH-309841

PATIENT
  Sex: Male

DRUGS (1)
  1. XOLAIR [Suspect]
     Indication: ASTHMA
     Dosage: 375 MG, Q2W
     Route: 058
     Dates: start: 20100722

REACTIONS (6)
  - ARRHYTHMIA [None]
  - CHEST PAIN [None]
  - FATIGUE [None]
  - MUSCLE DISORDER [None]
  - NECK PAIN [None]
  - SLEEP DISORDER [None]
